FAERS Safety Report 24246846 (Version 9)
Quarter: 2024Q4

REPORT INFORMATION
  Report Type: Report from Study
  Country: CA (occurrence: CA)
  Receive Date: 20240826
  Receipt Date: 20241227
  Transmission Date: 20250114
  Serious: Yes (Other)
  Sender: JOHNSON AND JOHNSON
  Company Number: CA-JNJFOC-20240748589

PATIENT
  Age: 7 Year
  Sex: Male
  Weight: 28 kg

DRUGS (2)
  1. REMICADE [Suspect]
     Active Substance: INFLIXIMAB
     Indication: Colitis ulcerative
     Dosage: 10MG/KG
     Route: 041
  2. REMICADE [Suspect]
     Active Substance: INFLIXIMAB
     Route: 041

REACTIONS (8)
  - Colitis ulcerative [Not Recovered/Not Resolved]
  - Gastrointestinal inflammation [Unknown]
  - Drug level decreased [Unknown]
  - Infusion related reaction [Recovered/Resolved]
  - Nasopharyngitis [Recovering/Resolving]
  - Therapeutic product effect decreased [Unknown]
  - Incorrect drug administration rate [Unknown]
  - Off label use [Unknown]

NARRATIVE: CASE EVENT DATE: 20241201
